FAERS Safety Report 12686100 (Version 2)
Quarter: 2019Q1

REPORT INFORMATION
  Report Type: Spontaneous
  Country: US (occurrence: US)
  Receive Date: 20160825
  Receipt Date: 20190218
  Transmission Date: 20190417
  Serious: No
  Sender: FDA-Public Use
  Company Number: US-ELI_LILLY_AND_COMPANY-US201608008453

PATIENT
  Sex: Male

DRUGS (4)
  1. HUMALOG MIX75/25 [Suspect]
     Active Substance: INSULIN LISPRO
     Dosage: 58 U, EACH EVENING
     Route: 065
     Dates: start: 201508
  2. HUMALOG MIX75/25 [Suspect]
     Active Substance: INSULIN LISPRO
     Dosage: 58 U, EACH EVENING
     Route: 065
  3. HUMALOG MIX75/25 [Suspect]
     Active Substance: INSULIN LISPRO
     Indication: TYPE 2 DIABETES MELLITUS
     Dosage: 58 U, EACH MORNING
     Route: 065
     Dates: start: 201508
  4. HUMALOG MIX75/25 [Suspect]
     Active Substance: INSULIN LISPRO
     Dosage: 58 U, EACH MORNING
     Route: 065

REACTIONS (1)
  - Back pain [Unknown]
